FAERS Safety Report 9109725 (Version 1)
Quarter: 2013Q1

REPORT INFORMATION
  Report Type: Spontaneous
  Country: US (occurrence: US)
  Receive Date: 20130222
  Receipt Date: 20130222
  Transmission Date: 20140127
  Serious: No
  Sender: FDA-Public Use
  Company Number: US-ASTRAZENECA-2013SE08975

PATIENT
  Age: 68 Year
  Sex: Female
  Weight: 74.8 kg

DRUGS (4)
  1. CRESTOR [Suspect]
     Indication: BLOOD CHOLESTEROL ABNORMAL
     Route: 048
     Dates: end: 2013
  2. NIASPAM SR [Concomitant]
  3. VALTREX [Concomitant]
  4. OMEGA3 WITH D [Concomitant]

REACTIONS (13)
  - Purpura [Unknown]
  - Weight decreased [Unknown]
  - Gastritis [Unknown]
  - Nasopharyngitis [Unknown]
  - Immune system disorder [Unknown]
  - Hepatic enzyme abnormal [Recovering/Resolving]
  - Nausea [Recovered/Resolved]
  - Constipation [Recovered/Resolved]
  - Abdominal pain upper [Not Recovered/Not Resolved]
  - Abdominal pain upper [Not Recovered/Not Resolved]
  - Fatigue [Not Recovered/Not Resolved]
  - Swelling face [Recovering/Resolving]
  - Glycosylated haemoglobin increased [Recovering/Resolving]
